FAERS Safety Report 10447479 (Version 3)
Quarter: 2014Q4

REPORT INFORMATION
  Report Type: Spontaneous
  Country: US (occurrence: US)
  Receive Date: 20140911
  Receipt Date: 20141030
  Transmission Date: 20150528
  Serious: Yes (Hospitalization)
  Sender: FDA-Public Use
  Company Number: US-BAYER-2014-135717

PATIENT
  Age: 28 Year
  Sex: Female
  Weight: 94 kg

DRUGS (1)
  1. MIRENA [Suspect]
     Active Substance: LEVONORGESTREL
     Indication: CONTRACEPTION
     Dosage: 20 MCG/24HR, CONT
     Route: 015
     Dates: start: 20121024, end: 20130412

REACTIONS (5)
  - Pain [None]
  - Uterine perforation [None]
  - Emotional distress [None]
  - Procedural pain [Not Recovered/Not Resolved]
  - Injury [None]

NARRATIVE: CASE EVENT DATE: 201304
